FAERS Safety Report 14343498 (Version 1)
Quarter: 2018Q1

REPORT INFORMATION
  Report Type: Spontaneous
  Country: US (occurrence: US)
  Receive Date: 20180102
  Receipt Date: 20180102
  Transmission Date: 20180509
  Serious: No
  Sender: FDA-Public Use
  Company Number: US-LUNDBECK-DKLU2031857

PATIENT
  Sex: Female

DRUGS (1)
  1. NORTHERA [Suspect]
     Active Substance: DROXIDOPA
     Indication: PRODUCT USED FOR UNKNOWN INDICATION
     Route: 065

REACTIONS (6)
  - Orthostatic intolerance [Unknown]
  - Dizziness [Unknown]
  - Fatigue [Unknown]
  - Diarrhoea [Unknown]
  - Gastric disorder [Unknown]
  - Insomnia [Unknown]
